FAERS Safety Report 4425621-1 (Version None)
Quarter: 2004Q3

REPORT INFORMATION
  Report Type: 
  Country: None (occurrence: None)
  Receive Date: 20040810
  Receipt Date: 20040727
  Transmission Date: 20050211
  Serious: Yes (Hospitalization)
  Sender: FDA-Public Use
  Company Number: US-SHR-04-022046

PATIENT
  Age: 60 Year
  Sex: Female
  Weight: 45.4 kg

DRUGS (10)
  1. BETASERON [Suspect]
     Indication: MULTIPLE SCLEROSIS
     Dosage: 8 MIU, EVERY 2D, SUBCUTANEOUS
     Route: 058
     Dates: start: 19930901, end: 20040216
  2. ACE INHIBITOR NOS [Suspect]
  3. LISINOPRIL [Concomitant]
  4. SOLU-MEDROL [Concomitant]
  5. LABETALOL HCL [Concomitant]
  6. TRIAMTERENE [Concomitant]
  7. DILTIAZEM [Concomitant]
  8. TIZANIDINE (TIZANIDINE) [Concomitant]
  9. LEVOXYL [Concomitant]
  10. PREMPRO [Concomitant]

REACTIONS (5)
  - BLOOD PRESSURE FLUCTUATION [None]
  - DERMATITIS EXFOLIATIVE [None]
  - HYPERTENSION [None]
  - INJECTION SITE REACTION [None]
  - RENAL FAILURE ACUTE [None]
